FAERS Safety Report 9853543 (Version 4)
Quarter: 2014Q1

REPORT INFORMATION
  Report Type: Spontaneous
  Country: CN (occurrence: CN)
  Receive Date: 20140129
  Receipt Date: 20140214
  Transmission Date: 20141002
  Serious: Yes (Death, Other)
  Sender: FDA-Public Use
  Company Number: CN-SA-2014SA002959

PATIENT
  Age: 51 Year
  Sex: Female
  Weight: 65 kg

DRUGS (4)
  1. THYMOGLOBULINE [Suspect]
     Indication: APLASTIC ANAEMIA
     Dosage: 150MG ON D1-2, 175 MG ON D3-4
     Route: 065
     Dates: start: 20131220, end: 20131223
  2. FLUDARABINE [Suspect]
     Indication: APLASTIC ANAEMIA
     Route: 042
     Dates: start: 20131218, end: 20131223
  3. CYCLOPHOSPHAMIDE [Suspect]
     Indication: APLASTIC ANAEMIA
     Route: 042
     Dates: start: 20131220, end: 20131223
  4. CICLOSPORIN [Suspect]
     Indication: APLASTIC ANAEMIA
     Route: 042
     Dates: start: 20131218, end: 20131230

REACTIONS (13)
  - Renal failure acute [Fatal]
  - Oliguria [Fatal]
  - Blood creatinine increased [Fatal]
  - Circulatory collapse [Fatal]
  - Respiratory failure [Fatal]
  - Chest discomfort [Fatal]
  - Dyspnoea [Fatal]
  - Cardiac failure chronic [Fatal]
  - Cardiac arrest [Fatal]
  - Atrial fibrillation [Fatal]
  - Loss of consciousness [Unknown]
  - Pneumonia [Fatal]
  - Body temperature increased [Fatal]
